FAERS Safety Report 6923304-7 (Version None)
Quarter: 2010Q3

REPORT INFORMATION
  Report Type: 
  Country: None (occurrence: None)
  Receive Date: 20100811
  Receipt Date: 20100727
  Transmission Date: 20110219
  Serious: Yes (Hospitalization)
  Sender: FDA-Public Use
  Company Number: A-US2010-38506

PATIENT
  Age: 71 Year
  Sex: Female

DRUGS (2)
  1. TRACLEER [Suspect]
     Indication: PULMONARY ARTERIAL HYPERTENSION
     Dosage: ORAL
     Route: 048
     Dates: start: 20100713
  2. REVATIO [Concomitant]

REACTIONS (3)
  - ARTERIAL THROMBOSIS LIMB [None]
  - OEDEMA PERIPHERAL [None]
  - VASCULAR PSEUDOANEURYSM [None]
